FAERS Safety Report 12648935 (Version 2)
Quarter: 2016Q3

REPORT INFORMATION
  Report Type: Report from Study
  Country: US (occurrence: US)
  Receive Date: 20160812
  Receipt Date: 20160916
  Transmission Date: 20161109
  Serious: Yes (Other)
  Sender: FDA-Public Use
  Company Number: US-MALLINCKRODT-T201603519

PATIENT
  Sex: Female

DRUGS (3)
  1. REPOSITORY CORTICOTROPIN INJECTION [Suspect]
     Active Substance: CORTICOTROPIN
     Dosage: 80 UNITS TWICE A WEEK
     Route: 065
     Dates: end: 20160725
  2. PREDNISONE. [Concomitant]
     Active Substance: PREDNISONE
  3. REPOSITORY CORTICOTROPIN INJECTION [Suspect]
     Active Substance: CORTICOTROPIN
     Indication: GLOMERULONEPHRITIS MEMBRANOUS
     Dosage: 40 UNITS/0.5 ML, TWO TIMES PER WEEK
     Route: 058
     Dates: start: 20160705

REACTIONS (3)
  - Joint swelling [Unknown]
  - Ear pain [Unknown]
  - Protein total abnormal [Not Recovered/Not Resolved]
